FAERS Safety Report 6769609-4 (Version None)
Quarter: 2010Q2

REPORT INFORMATION
  Report Type: 
  Country: None (occurrence: None)
  Receive Date: 20100610
  Receipt Date: 20100513
  Transmission Date: 20101027
  Serious: Yes (Death)
  Sender: FDA-Public Use
  Company Number: 2010RR-33624 BCN-AS-2010-RR-175

PATIENT
  Age: 86 Year
  Sex: Male

DRUGS (19)
  1. ACETAMINOPHEN [Suspect]
     Indication: PAIN
     Route: 048
     Dates: start: 20091018, end: 20091019
  2. ACETAMINOPHEN [Suspect]
     Indication: PAIN
     Route: 048
     Dates: start: 20091019, end: 20091019
  3. BENZYLPENICILLIN (BENZYLPENICILLIN) [Concomitant]
  4. BISOPROLOL FUMARATE [Concomitant]
  5. BUMETANIDE [Concomitant]
  6. CHLORDIAZEPOXIDE [Concomitant]
  7. CODEINE SUL TAB [Concomitant]
  8. CYCLIZINE (CYCLIZINE) [Concomitant]
  9. DIGOXIN [Concomitant]
  10. METRONIDAZOLE [Concomitant]
  11. MOVICOL (MACROGOL, POLYETHYLENE GLYCOL, POTASSIUM CHLORIDE, SODIUM BIC [Concomitant]
  12. OMEPRAZOLE [Concomitant]
  13. ONDANSETRON [Concomitant]
  14. PABRINEX (ASCORBIC ACID, NICOTINAMIDE, THIAMINE, RIBOFLAVIN) [Concomitant]
  15. RAMIPRIL [Concomitant]
  16. SIMVASTATIN [Concomitant]
  17. SPIROLACTONE (SPIRONOLACTONE) [Concomitant]
  18. VITAMIN B COMPOUND STRONG (NICOTINAMIDE, PYRIDOXINE HYDROCHLORIDE, RIB [Concomitant]
  19. ASCORBIC ACID [Concomitant]

REACTIONS (9)
  - ACIDOSIS [None]
  - ALANINE AMINOTRANSFERASE INCREASED [None]
  - ALCOHOL WITHDRAWAL SYNDROME [None]
  - ATRIAL FIBRILLATION [None]
  - HEPATIC NECROSIS [None]
  - HYPOPHAGIA [None]
  - OVERDOSE [None]
  - PNEUMONIA [None]
  - VOMITING [None]
